FAERS Safety Report 8013303-9 (Version None)
Quarter: 2011Q4

REPORT INFORMATION
  Report Type: 
  Country: None (occurrence: None)
  Receive Date: 20111229
  Receipt Date: 20111221
  Transmission Date: 20120403
  Serious: Yes (Other)
  Sender: FDA-Public Use
  Company Number: PHHY2011ES111026

PATIENT
  Age: 62 Year
  Sex: Male

DRUGS (4)
  1. ZOMETA [Suspect]
     Indication: BONE DISORDER
     Dosage: 4 MG EVERY 4 WEEKS
     Dates: start: 20110323, end: 20111205
  2. CALCIUM ACETATE [Concomitant]
  3. METFORMIN HCL [Concomitant]
  4. FENOFIBRATE [Concomitant]

REACTIONS (5)
  - BONE LESION [None]
  - EXPOSED BONE IN JAW [None]
  - OSTEOMYELITIS [None]
  - OSTEONECROSIS OF JAW [None]
  - BONE FISTULA [None]
